FAERS Safety Report 13080950 (Version 2)
Quarter: 2017Q4

REPORT INFORMATION
  Report Type: Spontaneous
  Country: US (occurrence: US)
  Receive Date: 20170103
  Receipt Date: 20171116
  Transmission Date: 20180320
  Serious: No
  Sender: FDA-Public Use
  Company Number: US-BAUSCH-BL-2016-025605

PATIENT
  Sex: Female

DRUGS (2)
  1. TETRABENAZINE. [Suspect]
     Active Substance: TETRABENAZINE
     Indication: HUNTINGTON^S DISEASE
     Route: 048
     Dates: start: 20160119
  2. TETRABENAZINE. [Suspect]
     Active Substance: TETRABENAZINE
     Dosage: 25MG TWICE DAILY AND 12.5MG AT 1PM
     Route: 048

REACTIONS (1)
  - Drug ineffective [Unknown]
